FAERS Safety Report 23850778 (Version 1)
Quarter: 2024Q2

REPORT INFORMATION
  Report Type: Report from Study
  Country: US (occurrence: US)
  Receive Date: 20240514
  Receipt Date: 20240514
  Transmission Date: 20240715
  Serious: Yes (Other)
  Sender: FDA-Public Use
  Company Number: US-ABBVIE-5756685

PATIENT
  Age: 68 Year
  Sex: Male
  Weight: 70.76 kg

DRUGS (2)
  1. CREON [Suspect]
     Active Substance: PANCRELIPASE AMYLASE\PANCRELIPASE LIPASE\PANCRELIPASE PROTEASE
     Indication: Pancreatic failure
     Dosage: FORM STRENGTH: 24000 UNIT?TWO CAPSULES FOR BREAKFAST, THREE CAPSULES EACH FOR LUNCH AND DINNER, A...
     Route: 048
     Dates: start: 2016
  2. LEVOTHYROXINE [Concomitant]
     Active Substance: LEVOTHYROXINE\LEVOTHYROXINE SODIUM
     Indication: Hypothyroidism

REACTIONS (6)
  - Post-traumatic neck syndrome [Recovering/Resolving]
  - Unevaluable event [Recovered/Resolved]
  - Concussion [Recovered/Resolved]
  - Pain [Recovering/Resolving]
  - Head injury [Unknown]
  - Road traffic accident [Unknown]

NARRATIVE: CASE EVENT DATE: 20230814
